FAERS Safety Report 7671517-1 (Version None)
Quarter: 2011Q3

REPORT INFORMATION
  Report Type: 
  Country: None (occurrence: None)
  Receive Date: 20110809
  Receipt Date: 20110802
  Transmission Date: 20111222
  Serious: Yes (Other)
  Sender: FDA-Public Use
  Company Number: FR-KINGPHARMUSA00001-K201100725

PATIENT
  Age: 51 Year
  Sex: Female

DRUGS (7)
  1. AMLODIPINE [Concomitant]
     Dosage: 5 MG, QD
     Route: 048
  2. ALCOHOL [Suspect]
     Dosage: UNK
  3. CITALOPRAM HYDROBROMIDE [Concomitant]
     Dosage: 20 MG, QD
     Route: 048
  4. ALTACE [Suspect]
     Dosage: UNK
     Route: 048
  5. HYDROCHLOROTHIAZIDE [Suspect]
     Dosage: UNK
     Route: 048
  6. METOPROLOL TARTRATE [Concomitant]
     Dosage: 100 MG, BID
     Route: 048
  7. DIAZEPAM [Suspect]

REACTIONS (1)
  - ROAD TRAFFIC ACCIDENT [None]
